FAERS Safety Report 8059428-3 (Version None)
Quarter: 2012Q1

REPORT INFORMATION
  Report Type: 
  Country: None (occurrence: None)
  Receive Date: 20120120
  Receipt Date: 20120117
  Transmission Date: 20120608
  Serious: No
  Sender: FDA-Public Use
  Company Number: US-TEVA-318137USA

PATIENT
  Sex: Female
  Weight: 61.29 kg

DRUGS (6)
  1. TOPAMAX [Concomitant]
     Indication: ANXIETY
  2. SYNTHROID [Concomitant]
     Indication: HYPOTHYROIDISM
  3. WELLBUTRIN [Concomitant]
     Indication: DEPRESSION
  4. ACIPHEX [Concomitant]
     Indication: GASTROOESOPHAGEAL REFLUX DISEASE
  5. PLAN B ONE-STEP [Suspect]
     Indication: POST COITAL CONTRACEPTION
     Dosage: 1.5 MILLIGRAM;
     Route: 048
     Dates: start: 20120108, end: 20120108
  6. LUNESTA [Concomitant]
     Indication: SLEEP DISORDER

REACTIONS (1)
  - MENSTRUATION IRREGULAR [None]
